FAERS Safety Report 22157495 (Version 11)
Quarter: 2023Q4

REPORT INFORMATION
  Report Type: Report from Study
  Country: US (occurrence: US)
  Receive Date: 20230330
  Receipt Date: 20231121
  Transmission Date: 20240110
  Serious: Yes (Hospitalization, Other)
  Sender: FDA-Public Use
  Company Number: US-TAIHOP-2023-002178

PATIENT
  Age: 75 Year
  Sex: Female
  Weight: 58.51 kg

DRUGS (28)
  1. LONSURF [Suspect]
     Active Substance: TIPIRACIL HYDROCHLORIDE\TRIFLURIDINE
     Indication: Colon cancer metastatic
     Dosage: CYCLE 1
     Route: 048
     Dates: start: 201901
  2. LONSURF [Suspect]
     Active Substance: TIPIRACIL HYDROCHLORIDE\TRIFLURIDINE
     Dosage: CYCLE UNKNOWN
     Route: 048
     Dates: start: 20220818
  3. LONSURF [Suspect]
     Active Substance: TIPIRACIL HYDROCHLORIDE\TRIFLURIDINE
     Dosage: CYCLE UNKNOWN
     Route: 048
     Dates: start: 20230713
  4. NITROFURANTOIN [Suspect]
     Active Substance: NITROFURANTOIN
     Indication: Urinary tract infection
     Dosage: UNKNOWN
     Route: 050
  5. DECADRON [Suspect]
     Active Substance: DEXAMETHASONE
     Indication: Product used for unknown indication
  6. ASPIRIN [Concomitant]
     Active Substance: ASPIRIN
     Indication: Product used for unknown indication
     Dosage: EC, TAKE 1 TABLET IN THE MORNING
     Route: 048
  7. ASPIRIN [Concomitant]
     Active Substance: ASPIRIN
     Dosage: ENTERIC COATED
     Route: 048
  8. FERROUS SULFATE [Concomitant]
     Active Substance: FERROUS SULFATE
     Indication: Product used for unknown indication
     Dosage: 3 TABLETS, DAILY IN THE MORNING
     Route: 048
  9. FERROUS SULFATE [Concomitant]
     Active Substance: FERROUS SULFATE
     Dosage: 3 TABLETS, DAILY IN THE MORNING
     Route: 048
  10. LOPRESSOR [Concomitant]
     Active Substance: METOPROLOL TARTRATE
     Indication: Atrial fibrillation
     Dosage: TAKE 0.5 TABLETS (12.5 MG) BY MOUTH IN THE MORNING AND AT BEDTIME
     Route: 048
     Dates: start: 20230223
  11. LOPRESSOR [Concomitant]
     Active Substance: METOPROLOL TARTRATE
     Dosage: TAKE 0.5 TABLETS (12.5 MG) BY MOUTH IN THE MORNING AND AT BEDTIME
     Route: 048
     Dates: start: 20230515
  12. PERCOCET [Concomitant]
     Active Substance: ACETAMINOPHEN\OXYCODONE HYDROCHLORIDE
     Indication: Pain
     Dosage: 5-325 MG, EVERY 4 HOURS,PRN
     Route: 048
     Dates: start: 20230309
  13. PERCOCET [Concomitant]
     Active Substance: ACETAMINOPHEN\OXYCODONE HYDROCHLORIDE
     Dosage: 5-325 MG, EVERY 4 HOURS,PRN
     Route: 048
     Dates: start: 20230308
  14. PERCOCET [Concomitant]
     Active Substance: ACETAMINOPHEN\OXYCODONE HYDROCHLORIDE
     Dosage: 325-5MG EVERY 8 HOURS PRN
     Route: 048
  15. PERCOCET [Concomitant]
     Active Substance: ACETAMINOPHEN\OXYCODONE HYDROCHLORIDE
     Dosage: 5-325 MG, EVERY 4 HOURS,PRN
     Route: 048
     Dates: start: 20230720
  16. DESYREL [Concomitant]
     Active Substance: TRAZODONE HYDROCHLORIDE
     Indication: Product used for unknown indication
     Dosage: TAKE 1 TABLET, 3 TIMES A DAY.
     Route: 048
     Dates: start: 20230223
  17. AMBIEN [Concomitant]
     Active Substance: ZOLPIDEM TARTRATE
     Indication: Sleep disorder
     Dosage: PRN
     Route: 048
     Dates: start: 20230219
  18. ATARAX [Concomitant]
     Active Substance: HYDROXYZINE HYDROCHLORIDE
     Indication: Product used for unknown indication
     Dosage: 1 TABLET, IN THE MORNING, AT NOON, IN THE EVENING AND AT BEDTIME
     Route: 048
     Dates: start: 20220225, end: 20230221
  19. ZOLPIDEM [Concomitant]
     Active Substance: ZOLPIDEM TARTRATE
     Indication: Product used for unknown indication
     Route: 048
  20. SACCHAROMYCES CEREVISIAE [Concomitant]
     Active Substance: SACCHAROMYCES CEREVISIAE
     Indication: Product used for unknown indication
     Route: 048
  21. TYLENOL EXTRA STRENGTH [Concomitant]
     Active Substance: ACETAMINOPHEN
     Indication: Product used for unknown indication
     Dosage: POWDER IN PACKET
  22. FOLVITE [Concomitant]
     Active Substance: FOLIC ACID
     Indication: Product used for unknown indication
     Dosage: IN THE MORNING
     Route: 048
  23. VOLTAREN [Concomitant]
     Active Substance: DICLOFENAC SODIUM
     Indication: Product used for unknown indication
     Dosage: EC
     Dates: start: 20230614, end: 20230731
  24. VALTREX [Concomitant]
     Active Substance: VALACYCLOVIR HYDROCHLORIDE
     Indication: Product used for unknown indication
     Route: 048
     Dates: start: 20230729
  25. ANTIVERT [Concomitant]
     Active Substance: MECLIZINE HYDROCHLORIDE
     Indication: Product used for unknown indication
     Dates: start: 20230507, end: 20230731
  26. ROBAXIN [Concomitant]
     Active Substance: METHOCARBAMOL
     Indication: Muscle spasms
     Dosage: IF NEEDED AT BEDTIME
     Route: 048
     Dates: start: 20230608, end: 20230731
  27. PAXIL [Concomitant]
     Active Substance: PAROXETINE HYDROCHLORIDE
     Indication: Product used for unknown indication
     Route: 048
     Dates: start: 20230703, end: 20230731
  28. PROBIOTICS NOS [Concomitant]
     Active Substance: PROBIOTICS NOS
     Indication: Product used for unknown indication

REACTIONS (24)
  - Fall [Unknown]
  - Pericardial effusion [Unknown]
  - Urinary tract infection [Unknown]
  - Palpitations [Unknown]
  - Dehydration [Unknown]
  - Clostridium difficile colitis [Unknown]
  - Pancytopenia [Unknown]
  - Adult failure to thrive [Unknown]
  - Oropharyngeal candidiasis [Recovered/Resolved]
  - Blood pressure systolic increased [Recovered/Resolved]
  - Disease progression [Not Recovered/Not Resolved]
  - Laryngitis [Recovered/Resolved]
  - Pain [Unknown]
  - Anxiety [Unknown]
  - Osteoarthritis [Unknown]
  - Dizziness [Unknown]
  - Pain in jaw [Unknown]
  - Oral pain [Unknown]
  - Headache [Unknown]
  - Decreased appetite [Unknown]
  - Asthenia [Unknown]
  - Diarrhoea [Unknown]
  - Nausea [Unknown]
  - Tongue disorder [Unknown]

NARRATIVE: CASE EVENT DATE: 20221001
